FAERS Safety Report 21089671 (Version 2)
Quarter: 2022Q3

REPORT INFORMATION
  Report Type: Spontaneous
  Country: BE (occurrence: BE)
  Receive Date: 20220715
  Receipt Date: 20220729
  Transmission Date: 20221026
  Serious: Yes (Hospitalization)
  Sender: FDA-Public Use
  Company Number: BE-TEVA-2022-BE-2053876

PATIENT
  Age: 61 Year
  Sex: Male

DRUGS (8)
  1. ETOPOSIDE [Suspect]
     Active Substance: ETOPOSIDE
     Indication: B-cell lymphoma
     Dosage: HIGH-DOSE BEAM CHEMOTHERAPY
     Route: 065
  2. CARMUSTINE [Suspect]
     Active Substance: CARMUSTINE
     Indication: B-cell lymphoma
     Dosage: HIGH-DOSE BEAM CHEMOTHERAPY
     Route: 065
  3. CYTARABINE [Suspect]
     Active Substance: CYTARABINE
     Indication: B-cell lymphoma
     Dosage: HIGH-DOSE BEAM CHEMOTHERAPY
     Route: 065
  4. MELPHALAN [Suspect]
     Active Substance: MELPHALAN
     Indication: B-cell lymphoma
     Dosage: HIGH-DOSE BEAM CHEMOTHERAPY
     Route: 065
  5. RITUXIMAB [Suspect]
     Active Substance: RITUXIMAB
     Indication: B-cell lymphoma
     Dosage: 8 INFUSIONS IN TOTAL OVER A PERIOD OF 1 YEAR
     Route: 065
  6. FOSCARNET [Suspect]
     Active Substance: FOSCARNET
     Indication: Human herpesvirus 6 encephalitis
     Route: 065
  7. ACYCLOVIR [Concomitant]
     Active Substance: ACYCLOVIR
     Indication: Meningoencephalitis herpetic
     Route: 065
  8. GANCICLOVIR [Concomitant]
     Active Substance: GANCICLOVIR
     Indication: Human herpesvirus 6 encephalitis
     Route: 042

REACTIONS (12)
  - Thrombocytopenia [Unknown]
  - Anaemia [Unknown]
  - Human herpesvirus 6 encephalitis [Unknown]
  - Human herpesvirus 6 infection reactivation [Unknown]
  - Cytomegalovirus infection reactivation [Unknown]
  - Drug ineffective [Unknown]
  - Candida infection [Unknown]
  - Retrograde amnesia [Unknown]
  - Anterograde amnesia [Unknown]
  - Pneumonia [Unknown]
  - Respiratory depression [Unknown]
  - Depressed level of consciousness [Unknown]
